FAERS Safety Report 5264981-9 (Version None)
Quarter: 2007Q1

REPORT INFORMATION
  Report Type: 
  Country: None (occurrence: None)
  Receive Date: 20070314
  Receipt Date: 20070222
  Transmission Date: 20070707
  Serious: Yes (Hospitalization)
  Sender: FDA-Public Use
  Company Number: FR-ROCHE-484406

PATIENT
  Age: 42 Year
  Sex: Male

DRUGS (12)
  1. FUZEON [Suspect]
     Indication: DRUG USE FOR UNKNOWN INDICATION
     Route: 048
     Dates: start: 20030915, end: 20061219
  2. TMC 114 [Suspect]
     Indication: DRUG USE FOR UNKNOWN INDICATION
     Dosage: DOSAGE: 4 DOSES PER DAY
     Route: 048
     Dates: start: 20060131, end: 20061219
  3. AZADOSE [Suspect]
     Indication: DRUG USE FOR UNKNOWN INDICATION
     Route: 048
     Dates: end: 20061219
  4. EPIVIR [Suspect]
     Indication: DRUG USE FOR UNKNOWN INDICATION
     Route: 048
     Dates: start: 20030915, end: 20061219
  5. NORVIR [Suspect]
     Indication: DRUG USE FOR UNKNOWN INDICATION
     Dosage: DRUG: NORVIR 100. DOSAGE: 2 DOSES PER DAY
     Route: 048
     Dates: start: 20030915, end: 20061219
  6. VIDEX [Suspect]
     Indication: DRUG USE FOR UNKNOWN INDICATION
     Dosage: DRUG: VIDEX 400.
     Route: 048
     Dates: start: 20060131, end: 20061219
  7. LASIX [Concomitant]
     Dates: start: 20061128
  8. CORTANCYL [Concomitant]
     Dosage: DOSAGE: 5 MG
     Dates: start: 20060315
  9. VALACYCLOVIR HCL [Concomitant]
     Dates: start: 20060915
  10. LYRICA [Concomitant]
     Dosage: DRUG NAME: LYRICA 75
     Dates: start: 20061204, end: 20061220
  11. TRAMADOL HCL [Concomitant]
     Dosage: DRUG NAME: TOPALGIC 50; STOPPED DURING HOSPITALIZATION
  12. RIVOTRIL [Concomitant]
     Dosage: STOPPED DURING HOSPITALISATION.

REACTIONS (8)
  - BLOOD METHAEMOGLOBIN PRESENT [None]
  - CHOLESTASIS [None]
  - CYTOLYTIC HEPATITIS [None]
  - DYSPNOEA [None]
  - HEPATITIS [None]
  - HYPERLIPIDAEMIA [None]
  - LACTIC ACIDOSIS [None]
  - PANCREATITIS [None]
